FAERS Safety Report 8758286 (Version 2)
Quarter: 2012Q4

REPORT INFORMATION
  Report Type: Spontaneous
  Country: CA (occurrence: None)
  Receive Date: 20120816
  Receipt Date: 20120907
  Transmission Date: 20130627
  Serious: No
  Sender: FDA-Public Use
  Company Number: ACO_31457_2012

PATIENT
  Age: 72 Year
  Sex: Male

DRUGS (1)
  1. FAMPYRA [Suspect]
     Indication: GAIT DISTURBANCE
     Route: 048
     Dates: start: 20120722, end: 20120730

REACTIONS (4)
  - Vomiting [None]
  - Biliary tract disorder [None]
  - Gastroenteritis [None]
  - Gallbladder disorder [None]
